FAERS Safety Report 4878123-2 (Version None)
Quarter: 2006Q1

REPORT INFORMATION
  Report Type: 
  Country: None (occurrence: None)
  Receive Date: 20060110
  Receipt Date: 20051230
  Transmission Date: 20060701
  Serious: Yes (Hospitalization)
  Sender: FDA-Public Use
  Company Number: 200510246BNE

PATIENT
  Age: 67 Year
  Sex: Male

DRUGS (6)
  1. ASPIRIN [Suspect]
     Indication: MYOCARDIAL INFARCTION
     Dosage: 300 MG, TOTAL DAILY, ORAL
     Route: 048
  2. METALYSE (TENECTEPLASE) [Suspect]
     Indication: MYOCARDIAL INFARCTION
     Dosage: 8000 IU, TOTAL DAILY, INTRAVENOUS
     Route: 042
  3. LOSARTAN [Concomitant]
  4. DOXAZOSIN [Concomitant]
  5. ENOXAPARIN [Concomitant]
  6. HEPARIN [Concomitant]

REACTIONS (9)
  - ABDOMINAL PAIN UPPER [None]
  - CHEST PAIN [None]
  - DYSPHAGIA [None]
  - FOREIGN BODY TRAUMA [None]
  - HAEMATEMESIS [None]
  - MEDIASTINAL HAEMATOMA [None]
  - ODYNOPHAGIA [None]
  - OESOPHAGEAL DISORDER [None]
  - OESOPHAGEAL MASS [None]
